FAERS Safety Report 6340489-4 (Version None)
Quarter: 2009Q3

REPORT INFORMATION
  Report Type: 
  Country: None (occurrence: None)
  Receive Date: 20090904
  Receipt Date: 20090826
  Transmission Date: 20100115
  Serious: Yes (Hospitalization)
  Sender: FDA-Public Use
  Company Number: US-JNJFOC-20090809353

PATIENT
  Age: 74 Year
  Sex: Male
  Weight: 99.79 kg

DRUGS (10)
  1. EXTRA STRENGTH TYLENOL [Suspect]
     Route: 048
  2. EXTRA STRENGTH TYLENOL [Suspect]
     Indication: PAIN
     Dosage: 1000 MG, 2-3 TIMES A DAY
     Route: 048
  3. EXTRA STRENGTH TYLENOL [Suspect]
     Route: 048
  4. EXTRA STRENGTH TYLENOL [Suspect]
     Indication: PAIN
     Dosage: TAKING FOR 4-5 MONTHS
     Route: 048
  5. GABAPENTIN [Concomitant]
     Indication: PAIN IN EXTREMITY
  6. LISINOPRIL [Concomitant]
     Indication: HYPERTENSION
  7. DIGOXIN [Concomitant]
     Indication: CARDIAC DISORDER
  8. FUROSEMIDE [Concomitant]
     Indication: FLUID RETENTION
  9. SPIROLACTONE [Concomitant]
     Indication: HYPERTENSION
  10. NEXIUM [Concomitant]

REACTIONS (2)
  - INTENTIONAL DRUG MISUSE [None]
  - ULCER HAEMORRHAGE [None]
